FAERS Safety Report 9343120 (Version 2)
Quarter: 2013Q2

REPORT INFORMATION
  Report Type: Report from Study
  Country: US (occurrence: US)
  Receive Date: 20130611
  Receipt Date: 20130628
  Transmission Date: 20140414
  Serious: Yes (Hospitalization)
  Sender: FDA-Public Use
  Company Number: US-MPIJNJ-2013-04301

PATIENT
  Age: 48 Year
  Sex: Female
  Weight: 82.72 kg

DRUGS (37)
  1. VELCADE [Suspect]
     Indication: PROPHYLAXIS AGAINST TRANSPLANT REJECTION
     Dosage: 2.6 MG, UNK
     Route: 042
     Dates: start: 20130422, end: 20130516
  2. VELCADE [Suspect]
     Dosage: 2.5 MG, UNK
     Route: 042
     Dates: start: 20130422, end: 20130516
  3. ACYCLOVIR [Suspect]
     Indication: DIALYSIS
     Dosage: 5 MG/KG, UNK
     Route: 042
     Dates: end: 20130523
  4. AM LACTIN [Concomitant]
     Indication: PRODUCT USED FOR UNKNOWN INDICATION
     Dosage: UNK UNK, PRN
     Route: 061
  5. ASPIRIN (E.C.) [Concomitant]
     Indication: PRODUCT USED FOR UNKNOWN INDICATION
     Dosage: 81 MG, QD
     Route: 048
  6. ROCALTROL [Concomitant]
     Indication: PRODUCT USED FOR UNKNOWN INDICATION
     Dosage: 0.5 ?G, CYCLIC
     Route: 048
  7. VITAMIN B12                        /00056201/ [Concomitant]
     Indication: PRODUCT USED FOR UNKNOWN INDICATION
     Dosage: 1000 ?G, MONTHLY
     Route: 030
  8. DIALYVITE 800 WITH ZINC [Concomitant]
     Indication: PRODUCT USED FOR UNKNOWN INDICATION
     Dosage: 0.8 MG, QD
     Route: 048
  9. DILTIA XT [Concomitant]
     Indication: PRODUCT USED FOR UNKNOWN INDICATION
     Dosage: 180 MG, BID
     Route: 048
  10. LONOX [Concomitant]
     Indication: DIARRHOEA
     Dosage: 0.025 MG, UNK
     Route: 048
  11. COLACE [Concomitant]
     Indication: CONSTIPATION
     Dosage: 200 MG, PRN
     Route: 048
  12. EPOGEN [Concomitant]
     Indication: ANAEMIA OF MALIGNANT DISEASE
     Dosage: UNK UNK, 1/WEEK
     Route: 042
  13. FERREX [Concomitant]
     Indication: PRODUCT USED FOR UNKNOWN INDICATION
     Dosage: 150 MG, QD
     Route: 048
  14. FLONASE [Concomitant]
     Indication: SINUS CONGESTION
     Dosage: 100 ?G, QD
     Route: 045
  15. FOLIC ACID [Concomitant]
     Indication: ANAEMIA
     Dosage: 1600 ?G, QD
     Route: 048
  16. HEPARIN [Concomitant]
     Indication: PRODUCT USED FOR UNKNOWN INDICATION
     Dosage: UNK UNK, 1/WEEK
     Route: 042
  17. APRESOLINE [Concomitant]
     Indication: PRODUCT USED FOR UNKNOWN INDICATION
     Dosage: 100 MG, BID
     Route: 048
  18. ANUSOL HC [Concomitant]
     Indication: HAEMORRHOIDS
     Dosage: 25 MG, PRN
     Route: 054
  19. LEVOTHROID [Concomitant]
     Indication: PRODUCT USED FOR UNKNOWN INDICATION
     Dosage: 50 ?G, QD
     Route: 048
  20. COZAAR [Concomitant]
     Indication: PRODUCT USED FOR UNKNOWN INDICATION
     Dosage: 25 MG, QD
     Route: 048
  21. ORTHO MICRONOR-28 [Concomitant]
     Indication: PRODUCT USED FOR UNKNOWN INDICATION
     Dosage: 0.35 MG, QD
     Route: 048
  22. ZOFRAN ODT                         /00955302/ [Concomitant]
     Indication: NAUSEA
     Dosage: 8 MG, PRN
     Route: 048
  23. PROTONIX                           /01263201/ [Concomitant]
     Indication: PRODUCT USED FOR UNKNOWN INDICATION
     Dosage: 40 MG, QD
     Route: 048
  24. REGLAN                             /00041901/ [Concomitant]
     Indication: NAUSEA
     Dosage: 5 MG, PRN
     Route: 048
  25. RENVELA [Concomitant]
     Indication: PRODUCT USED FOR UNKNOWN INDICATION
     Dosage: 1600 MG, TID
     Route: 048
  26. TRAZODONE [Concomitant]
     Indication: PRODUCT USED FOR UNKNOWN INDICATION
  27. TIZANIDINE [Concomitant]
     Indication: PRODUCT USED FOR UNKNOWN INDICATION
  28. ROPINIROLE [Concomitant]
     Indication: PRODUCT USED FOR UNKNOWN INDICATION
  29. CLONIDINE [Concomitant]
     Indication: PRODUCT USED FOR UNKNOWN INDICATION
  30. AMBIEN [Concomitant]
     Indication: SLEEP DISORDER
     Dosage: 10 MG, PRN
  31. CATAPRES                           /00171101/ [Concomitant]
     Indication: HYPERTENSION
     Dosage: 0.3 MG, PRN
     Route: 048
  32. CYMBALTA [Concomitant]
     Indication: PAIN
     Dosage: 60 MG, QD
     Route: 048
  33. CYMBALTA [Concomitant]
     Indication: DEPRESSION
  34. REQUIP [Concomitant]
     Indication: PRODUCT USED FOR UNKNOWN INDICATION
     Dosage: 1 MG, QD
     Route: 048
  35. ZANAFLEX [Concomitant]
     Indication: MIGRAINE
     Dosage: 4 MG, QD
     Route: 048
  36. DESYREL [Concomitant]
     Indication: SLEEP DISORDER
     Dosage: 100 MG, PRN
  37. ORTHO TRI-CYCLEN [Concomitant]
     Indication: CONTRACEPTION
     Dosage: UNK
     Dates: start: 2012

REACTIONS (4)
  - Herpes zoster disseminated [Recovered/Resolved]
  - Herpes simplex [Recovered/Resolved]
  - Neurotoxicity [Recovered/Resolved]
  - Peritonitis [Recovered/Resolved]
